FAERS Safety Report 21869705 (Version 1)
Quarter: 2023Q1

REPORT INFORMATION
  Report Type: Other
  Country: VN (occurrence: VN)
  Receive Date: 20230117
  Receipt Date: 20230117
  Transmission Date: 20230417
  Serious: Yes (Other)
  Sender: FDA-Public Use
  Company Number: VN-BoehringerIngelheim-2023-BI-211901

PATIENT
  Sex: Male

DRUGS (5)
  1. ALTEPLASE [Suspect]
     Active Substance: ALTEPLASE
     Indication: Ischaemic stroke
     Dosage: 0.9 MG/KG INFUSED OVER 60 MINUTES, WITH 10% OF THE TOTAL DOSE AS AN INITIAL IV BOLUS
     Route: 042
  2. ASPIRIN\CLOPIDOGREL [Concomitant]
     Active Substance: ASPIRIN\CLOPIDOGREL
     Indication: Product used for unknown indication
     Dosage: 300 MG CLOPIDOGREL AND 162 MG ASPIRIN
  3. ASPIRIN\CLOPIDOGREL [Concomitant]
     Active Substance: ASPIRIN\CLOPIDOGREL
     Dosage: 75 MG CLOPIDOGREL AND 100 MG ASPIRIN
  4. HEPARIN [Concomitant]
     Active Substance: HEPARIN SODIUM
     Indication: Product used for unknown indication
     Route: 042
  5. HEPARIN [Concomitant]
     Active Substance: HEPARIN SODIUM
     Route: 042

REACTIONS (2)
  - Infarction [Unknown]
  - Treatment failure [Unknown]
